FAERS Safety Report 4907856-4 (Version None)
Quarter: 2006Q1

REPORT INFORMATION
  Report Type: 
  Country: None (occurrence: None)
  Receive Date: 20060210
  Receipt Date: 20060203
  Transmission Date: 20060701
  Serious: Yes (Other)
  Sender: FDA-Public Use
  Company Number: US-AVENTIS-200611232US

PATIENT
  Sex: Female

DRUGS (3)
  1. KETEK [Suspect]
     Indication: PNEUMONIA
     Dosage: DOSE: UNKNOWN
  2. LIPITOR [Suspect]
     Dosage: DOSE: UNKNOWN
  3. PROCARDIA [Suspect]
     Dosage: DOSE: UNK

REACTIONS (4)
  - DYSPNOEA [None]
  - ISCHAEMIC HEPATITIS [None]
  - URINARY RETENTION [None]
  - VOMITING [None]
